FAERS Safety Report 4648411-3 (Version None)
Quarter: 2005Q2

REPORT INFORMATION
  Report Type: 
  Country: None (occurrence: None)
  Receive Date: 20050427
  Receipt Date: 20050414
  Transmission Date: 20051028
  Serious: Yes (Life-Threatening, Other)
  Sender: FDA-Public Use
  Company Number: HQWYE025014APR05

PATIENT
  Age: 77 Year
  Sex: Male

DRUGS (5)
  1. AMIODARONE HCL [Suspect]
     Dosage: 150 MG 1X PER 1 D, INTRAVENOUS
     Route: 042
     Dates: start: 20010613, end: 20010613
  2. DIGOXIN [Concomitant]
  3. CEFUROXIME [Concomitant]
  4. ASPIRIN [Concomitant]
  5. METOCLOPRAMIDE [Concomitant]

REACTIONS (3)
  - BRONCHOSPASM [None]
  - DYSPNOEA [None]
  - HYPERTENSION [None]
